FAERS Safety Report 5787841-3 (Version None)
Quarter: 2008Q2

REPORT INFORMATION
  Report Type: 
  Country: None (occurrence: None)
  Receive Date: 20080625
  Receipt Date: 20080613
  Transmission Date: 20081010
  Serious: Yes (Hospitalization)
  Sender: FDA-Public Use
  Company Number: JP-GILEAD-E2B_00000147

PATIENT
  Sex: Female

DRUGS (19)
  1. HEPSERA [Suspect]
     Indication: HEPATIC CIRRHOSIS
     Route: 048
     Dates: start: 20050119, end: 20051021
  2. HEPSERA [Suspect]
     Route: 048
     Dates: start: 20051022, end: 20070626
  3. HEPSERA [Suspect]
     Route: 048
     Dates: start: 20070627
  4. ZEFIX [Concomitant]
     Indication: HEPATIC CIRRHOSIS
     Route: 048
     Dates: start: 20030826
  5. ZEFIX [Concomitant]
     Route: 048
     Dates: start: 20051022, end: 20070626
  6. ZEFIX [Concomitant]
     Route: 048
     Dates: start: 20070627
  7. FUROSEMIDE [Concomitant]
  8. ALOSENN [Concomitant]
     Route: 048
  9. GLYSENNID [Concomitant]
     Route: 048
  10. GLIMICRON [Concomitant]
     Route: 048
  11. LUVOX [Concomitant]
     Route: 048
  12. LEVOTHYROXINE SODIUM [Concomitant]
     Route: 048
  13. HALCION [Concomitant]
     Route: 048
  14. RABEPRAZOLE SODIUM [Concomitant]
  15. ALLEGRA [Concomitant]
  16. MAGMITT [Concomitant]
  17. FLUTIDE [Concomitant]
  18. DIART [Concomitant]
     Indication: ASCITES
     Route: 048
     Dates: end: 20051001
  19. ALDACTONE [Concomitant]
     Indication: ASCITES
     Route: 048
     Dates: end: 20051001

REACTIONS (14)
  - ACIDOSIS [None]
  - ANOREXIA [None]
  - ASTHENIA [None]
  - BACK PAIN [None]
  - BLOOD ALKALINE PHOSPHATASE INCREASED [None]
  - BLOOD CREATININE INCREASED [None]
  - BLOOD PARATHYROID HORMONE INCREASED [None]
  - CONSTIPATION [None]
  - DEHYDRATION [None]
  - FACE OEDEMA [None]
  - HYPERPARATHYROIDISM [None]
  - MALAISE [None]
  - PARATHYROID TUMOUR BENIGN [None]
  - RENAL DISORDER [None]
